FAERS Safety Report 8418933 (Version 3)
Quarter: 2012Q4

REPORT INFORMATION
  Report Type: 
  Country: US (occurrence: US)
  Receive Date: 20120221
  Receipt Date: 20120910
  Transmission Date: 20130627
  Serious: Yes (Other)
  Sender: FDA-Public Use
  Company Number: US-JNJFOC-20120207418

PATIENT
  Age: 20 None
  Sex: Female
  Weight: 74.39 kg

DRUGS (1)
  1. TRINESSA [Suspect]
     Indication: CONTRACEPTION
     Route: 048
     Dates: start: 201008

REACTIONS (1)
  - Multiple sclerosis [Not Recovered/Not Resolved]
